FAERS Safety Report 19585825 (Version 3)
Quarter: 2021Q3

REPORT INFORMATION
  Report Type: Spontaneous
  Country: IN (occurrence: IN)
  Receive Date: 20210720
  Receipt Date: 20210804
  Transmission Date: 20211014
  Serious: Yes (Hospitalization, Other)
  Sender: FDA-Public Use
  Company Number: IN-PFIZER INC-2021882477

PATIENT
  Age: 80 Year
  Sex: Female

DRUGS (8)
  1. PALBACE [Suspect]
     Active Substance: PALBOCICLIB
     Dosage: 125 MG, 1X/DAY
     Route: 048
     Dates: start: 20200919
  2. DENOSUMAB [Concomitant]
     Active Substance: DENOSUMAB
     Dosage: 120 MG, MONTHLY
     Route: 058
  3. PALBACE [Suspect]
     Active Substance: PALBOCICLIB
     Dosage: UNK
  4. FEMARA [Concomitant]
     Active Substance: LETROZOLE
     Dosage: 2.5 MG, 1X/DAY (AFTER B/F)
  5. PALBACE [Suspect]
     Active Substance: PALBOCICLIB
     Dosage: 125 MG, CYCLIC (125MG OD X3WEEKS  1WEEK OFF)
  6. GEMCAL [CALCITRIOL;CALCIUM CARBIMIDE CITRATE;ZINC] [Concomitant]
     Dosage: 500 MG, 1X/DAY
  7. PALBACE [Suspect]
     Active Substance: PALBOCICLIB
     Indication: BREAST CANCER METASTATIC
     Dosage: 100 MG, 1X/DAY
     Route: 048
     Dates: start: 20200919
  8. PALBACE [Suspect]
     Active Substance: PALBOCICLIB
     Dosage: UNK
     Dates: end: 20210614

REACTIONS (7)
  - Blood sodium decreased [Recovering/Resolving]
  - Full blood count decreased [Unknown]
  - Haemoglobin decreased [Unknown]
  - Toxicity to various agents [Unknown]
  - Urosepsis [Unknown]
  - Blood creatine increased [Unknown]
  - Glycosylated haemoglobin increased [Unknown]
